FAERS Safety Report 20541327 (Version 1)
Quarter: 2022Q1

REPORT INFORMATION
  Report Type: Spontaneous
  Country: US (occurrence: US)
  Receive Date: 20220302
  Receipt Date: 20220302
  Transmission Date: 20220423
  Serious: No
  Sender: FDA-Public Use
  Company Number: US-PFIZER INC-2021749904

PATIENT
  Age: 54 Year
  Sex: Male
  Weight: 105.94 kg

DRUGS (9)
  1. XELJANZ [Suspect]
     Active Substance: TOFACITINIB CITRATE
     Indication: Colitis ulcerative
     Dosage: 5 MG, DAILY
     Route: 048
     Dates: start: 201905
  2. ASACOL HD [Concomitant]
     Active Substance: MESALAMINE
     Dosage: 800 MG
  3. CHOLECALCIFEROL [Concomitant]
     Active Substance: CHOLECALCIFEROL
     Dosage: 0.4 MG
  4. PRILOSEC [Concomitant]
     Active Substance: OMEPRAZOLE MAGNESIUM
     Dosage: 20 MG
  5. STRESS FORMULA [ASCORBIC ACID;CALCIUM PANTOTHENATE;NICOTINAMIDE;PYRIDO [Concomitant]
     Dosage: UNK
  6. LORATADINE [Concomitant]
     Active Substance: LORATADINE
     Dosage: 10 MG
  7. ALLERGY RELIEF [FEXOFENADINE HYDROCHLORIDE] [Concomitant]
     Dosage: 180 MG
  8. FAMOTIDINE [Concomitant]
     Active Substance: FAMOTIDINE
     Dosage: 20 MG
  9. MESALAMINE [Concomitant]
     Active Substance: MESALAMINE
     Dosage: 4 G

REACTIONS (1)
  - Acne [Unknown]
